FAERS Safety Report 8760285 (Version 1)
Quarter: 2012Q4

REPORT INFORMATION
  Report Type: Spontaneous
  Country: US (occurrence: None)
  Receive Date: 20120829
  Receipt Date: 20120829
  Transmission Date: 20130627
  Serious: Yes (Other)
  Sender: FDA-Public Use
  Company Number: None

PATIENT
  Age: 28 Year
  Sex: Male
  Weight: 74.84 kg

DRUGS (1)
  1. PROPECIA [Suspect]
     Indication: HAIR LOSS
     Dates: start: 20070301, end: 20120518

REACTIONS (9)
  - Erectile dysfunction [None]
  - Loss of libido [None]
  - Anxiety [None]
  - Insomnia [None]
  - Cognitive disorder [None]
  - Memory impairment [None]
  - Arthralgia [None]
  - Genital hypoaesthesia [None]
  - Genital swelling [None]
